FAERS Safety Report 5729786-0 (Version None)
Quarter: 2008Q2

REPORT INFORMATION
  Report Type: 
  Country: None (occurrence: None)
  Receive Date: 20080501
  Receipt Date: 20080410
  Transmission Date: 20081010
  Serious: Yes (Other)
  Sender: FDA-Public Use
  Company Number: M-08-0402

PATIENT
  Age: 64 Year
  Sex: Female

DRUGS (3)
  1. DELIDOSE (ESTRADIOL) ORION PHARMA [Suspect]
     Indication: HORMONE REPLACEMENT THERAPY
     Dosage: TOPICAL
     Route: 061
     Dates: end: 20080410
  2. LUTENYL (UNKNOWN) [Concomitant]
  3. CORTANCYL (UNKNOWN) [Concomitant]

REACTIONS (3)
  - RETINAL OEDEMA [None]
  - RETINAL VEIN OCCLUSION [None]
  - VISUAL ACUITY REDUCED [None]
